FAERS Safety Report 9343620 (Version 2)
Quarter: 2013Q2

REPORT INFORMATION
  Report Type: Spontaneous
  Country: GB (occurrence: None)
  Receive Date: 20130610
  Receipt Date: 20130613
  Transmission Date: 20140414
  Serious: Yes (Other)
  Sender: FDA-Public Use
  Company Number: AUR-APL-2013-04680

PATIENT
  Age: 58 Year
  Sex: Male
  Weight: 97 kg

DRUGS (2)
  1. AMOXICILLIN + CLAVULANIC ACID [Suspect]
     Indication: ACUTE TONSILLITIS
     Dosage: 500/125MG DOSAGE FORMS THREE TIMES A DAY, ORAL
     Route: 048
     Dates: start: 20130408, end: 20130415
  2. PRAVASTATIN (PRAVASTATIN) [Concomitant]

REACTIONS (5)
  - Malaise [None]
  - Jaundice [None]
  - Liver function test abnormal [None]
  - Alanine aminotransferase increased [None]
  - Blood bilirubin increased [None]
